FAERS Safety Report 18177494 (Version 1)
Quarter: 2020Q3

REPORT INFORMATION
  Report Type: Spontaneous
  Country: DE (occurrence: DE)
  Receive Date: 20200821
  Receipt Date: 20200821
  Transmission Date: 20201103
  Serious: Yes (Hospitalization)
  Sender: FDA-Public Use
  Company Number: DE-TEVA-2020-DE-1815665

PATIENT
  Age: 77 Year
  Sex: Male
  Weight: 83.3 kg

DRUGS (16)
  1. XIPAMID [Concomitant]
     Active Substance: XIPAMIDE
     Dosage: 20 MILLIGRAM DAILY; 20 MG, 1?0?0?0
     Route: 048
  2. MAGNESIUMCITRAT [Concomitant]
     Dosage: 1 DOSAGE FORMS DAILY; NK MG, 1?0?0?0
     Route: 048
  3. ATORVASTATIN [Concomitant]
     Active Substance: ATORVASTATIN
     Dosage: 20 MILLIGRAM DAILY; 0?0?1?0
     Route: 048
  4. BISOPROLOL [Concomitant]
     Active Substance: BISOPROLOL
     Dosage: 2.5 MILLIGRAM DAILY; 1?0?0?0
     Route: 048
  5. KALIUM VERLA [Concomitant]
     Active Substance: POTASSIUM CITRATE
     Dosage: 1 DOSAGE FORMS DAILY; NK MG, 1?0?0?0
     Route: 048
  6. FOLSAN 0,4MG [Concomitant]
     Dosage: .4 MILLIGRAM DAILY; 1?0?0?0
     Route: 048
  7. PEMBROLIZUMAB. [Suspect]
     Active Substance: PEMBROLIZUMAB
     Dosage: LAST 20012020
  8. AMLODIPIN [Concomitant]
     Active Substance: AMLODIPINE BESYLATE
     Dosage: 5 MILLIGRAM DAILY;  1?0?0?0
     Route: 048
  9. ACETYLSALICYLSAURE [Concomitant]
     Active Substance: ASPIRIN
     Dosage: 100 MILLIGRAM DAILY; 100 MG, 1?0?0?0
     Route: 048
  10. COTRIM FORTE 800MG/160MG [Concomitant]
     Active Substance: SULFAMETHOXAZOLE\TRIMETHOPRIM
     Dosage: 800 | 60 MG / 3X WEEK, MON WED FRI 1X
     Route: 048
  11. TORASEMID [Concomitant]
     Active Substance: TORSEMIDE
     Dosage: 5 MILLIGRAM DAILY; 1?0?0?0
     Route: 048
  12. EDOXABAN [Concomitant]
     Active Substance: EDOXABAN TOSYLATE
     Dosage: 60 MILLIGRAM DAILY; 1?0?0?0
     Route: 048
  13. DEXAMETHASON [Suspect]
     Active Substance: DEXAMETHASONE
     Dosage: 12 MILLIGRAM DAILY;  1?1?1?0
     Route: 048
  14. PACLITAXEL. [Concomitant]
     Active Substance: PACLITAXEL
     Dosage: LAST 20012020
  15. LEVOTHYROXIN?NATRIUM [Concomitant]
     Active Substance: LEVOTHYROXINE SODIUM
     Dosage: 75 MICROGRAM DAILY; 1?0?0?0
     Route: 048
  16. CARBOPLATIN. [Concomitant]
     Active Substance: CARBOPLATIN
     Dosage: LAST 20012020

REACTIONS (2)
  - Hyperglycaemia [Recovering/Resolving]
  - General physical health deterioration [Recovering/Resolving]
